FAERS Safety Report 7870114-2 (Version None)
Quarter: 2011Q4

REPORT INFORMATION
  Report Type: 
  Country: None (occurrence: None)
  Receive Date: 20111027
  Receipt Date: 20111011
  Transmission Date: 20120403
  Serious: Yes (Hospitalization)
  Sender: FDA-Public Use
  Company Number: PD 148

PATIENT
  Age: 27 Year
  Sex: Male

DRUGS (1)
  1. RANITIDINE [Suspect]
     Indication: DUODENAL ULCER

REACTIONS (2)
  - JAUNDICE [None]
  - ABDOMINAL DISCOMFORT [None]
